FAERS Safety Report 11276618 (Version 1)
Quarter: 2015Q3

REPORT INFORMATION
  Report Type: Spontaneous
  Country: US (occurrence: US)
  Receive Date: 20150716
  Receipt Date: 20150716
  Transmission Date: 20151125
  Serious: Yes (Other)
  Sender: FDA-Public Use
  Company Number: US-PFIZER INC-2015232178

PATIENT
  Age: 63 Year
  Sex: Female

DRUGS (22)
  1. LEFLUNOMIDE. [Suspect]
     Active Substance: LEFLUNOMIDE
     Dosage: UNK
  2. SINGULAIR [Concomitant]
     Active Substance: MONTELUKAST SODIUM
     Dosage: 10 MG, 1X/DAY
     Dates: start: 20150401
  3. HYDROXYCHLOROQUINE [Suspect]
     Active Substance: HYDROXYCHLOROQUINE
     Dosage: UNK
  4. NEURONTIN [Concomitant]
     Active Substance: GABAPENTIN
     Dosage: 800 MG, (1 PO TID TO QID)
     Route: 048
     Dates: start: 20100607
  5. TOPIRAMATE. [Concomitant]
     Active Substance: TOPIRAMATE
     Dosage: 100 MG, (QHS)
     Dates: start: 20130101
  6. PREMARIN [Concomitant]
     Active Substance: ESTROGENS, CONJUGATED
     Dosage: 1.25 MG, 1X/DAY
     Dates: start: 20100607
  7. LIDODERM [Concomitant]
     Active Substance: LIDOCAINE
     Dosage: (PATCH 12 HRS ON /12 HRS OFF PRN)
     Dates: start: 20131101
  8. FISH OIL [Concomitant]
     Active Substance: FISH OIL
     Dosage: 1 DF, 2X/DAY
     Dates: start: 20130501
  9. PRILOCAINE [Concomitant]
     Active Substance: PRILOCAINE
     Dosage: (2.5%/2.5 %), AS NEEDED
     Dates: start: 20131115
  10. CENTRUM SILVER /02363801/ [Concomitant]
     Active Substance: VITAMINS
     Dosage: 1 DF, 1X/DAY
     Dates: start: 20100607
  11. MIRTAZAPINE. [Concomitant]
     Active Substance: MIRTAZAPINE
     Dosage: 15 MG, (QHS)
     Dates: start: 20150401
  12. PREDNISOLONE. [Concomitant]
     Active Substance: PREDNISOLONE
     Dosage: (1-2 AS PRN UP TO 4X/D), AS NEEDED
     Dates: start: 20150401
  13. METAMUCIL [Concomitant]
     Active Substance: PLANTAGO SEED
     Dosage: (1 TPSN BID), AS NEEDED
     Dates: start: 20130501
  14. CALCIUM CITRATE [Concomitant]
     Active Substance: CALCIUM CITRATE
     Dosage: UNK, 1X/DAY
     Dates: start: 20140501
  15. XELJANZ [Suspect]
     Active Substance: TOFACITINIB CITRATE
     Dosage: 10 MG, 2X/DAY
     Route: 048
     Dates: start: 20140729
  16. KLONOPIN [Concomitant]
     Active Substance: CLONAZEPAM
     Dosage: (1 MG 1 TABS IN AM, 1 TAB PO QHS)
     Dates: start: 20100607
  17. VITAMIN D /00107901/ [Concomitant]
     Active Substance: ERGOCALCIFEROL
     Dosage: 1000 IU, 1X/DAY
     Dates: start: 20100607
  18. PLAQUENIL [Concomitant]
     Active Substance: HYDROXYCHLOROQUINE SULFATE
     Dosage: 200 MG, 2X/DAY
     Dates: start: 20121015
  19. VOLTAREN [Concomitant]
     Active Substance: DICLOFENAC SODIUM
     Dosage: (1% 2-4 GRAMS TID TO QID TO AFFECT)
     Dates: start: 20130805
  20. PROMETHAZINE [Concomitant]
     Active Substance: PROMETHAZINE\PROMETHAZINE HYDROCHLORIDE
     Dosage: 25 MG, AS NEEDED (QD)
     Dates: start: 20150401
  21. IRON [Concomitant]
     Active Substance: IRON
     Dosage: 1 DF, UNK (NOT TAKING LATELY)
     Dates: start: 20130401
  22. BUDESONIDE. [Concomitant]
     Active Substance: BUDESONIDE
     Dosage: 3 MG, 1X/DAY
     Dates: start: 20140501

REACTIONS (12)
  - Organising pneumonia [Recovered/Resolved]
  - Pain in extremity [Unknown]
  - Joint swelling [Unknown]
  - Musculoskeletal pain [Unknown]
  - Arthralgia [Unknown]
  - Complex regional pain syndrome [Unknown]
  - Middle insomnia [Unknown]
  - Pneumonitis [Recovered/Resolved]
  - Interstitial lung disease [Recovered/Resolved]
  - Cough [Unknown]
  - Activities of daily living impaired [Unknown]
  - Musculoskeletal stiffness [Unknown]
